FAERS Safety Report 10630862 (Version 1)
Quarter: 2014Q4

REPORT INFORMATION
  Report Type: Spontaneous
  Country: US (occurrence: None)
  Receive Date: 20141203
  Receipt Date: 20141203
  Transmission Date: 20150529
  Serious: Yes (Hospitalization, Other)
  Sender: FDA-Public Use
  Company Number: None

PATIENT
  Age: 66 Year
  Sex: Female
  Weight: 62.6 kg

DRUGS (1)
  1. HUMIRA [Suspect]
     Active Substance: ADALIMUMAB
     Indication: RHEUMATOID ARTHRITIS
     Dosage: ON INJECTION EVERY 2 WEEKS INJECTED INTO UPPER THIGH OR STOMACH
     Dates: start: 201309, end: 201408

REACTIONS (3)
  - Nephrolithiasis [None]
  - Pain in extremity [None]
  - Arthralgia [None]
